FAERS Safety Report 5828614-2 (Version None)
Quarter: 2008Q3

REPORT INFORMATION
  Report Type: 
  Country: None (occurrence: None)
  Receive Date: 20080731
  Receipt Date: 20080729
  Transmission Date: 20090109
  Serious: Yes (Hospitalization)
  Sender: FDA-Public Use
  Company Number: A0729537A

PATIENT
  Age: 56 Year
  Sex: Female

DRUGS (3)
  1. TYKERB [Suspect]
     Dates: start: 20071121, end: 20080501
  2. ZOMETA [Concomitant]
     Dates: start: 20070823
  3. HERCEPTIN [Concomitant]
     Dates: start: 20070926, end: 20080625

REACTIONS (12)
  - COUGH [None]
  - DISEASE PROGRESSION [None]
  - DYSPNOEA [None]
  - HYPERCAPNIA [None]
  - HYPOCAPNIA [None]
  - HYPOXIA [None]
  - INTERSTITIAL LUNG DISEASE [None]
  - METASTATIC NEOPLASM [None]
  - PNEUMONITIS [None]
  - PYREXIA [None]
  - RALES [None]
  - TACHYPNOEA [None]
